FAERS Safety Report 8839475 (Version 1)
Quarter: 2012Q4

REPORT INFORMATION
  Report Type: Spontaneous
  Country: US (occurrence: None)
  Receive Date: 20121012
  Receipt Date: 20121012
  Transmission Date: 20130627
  Serious: Yes (Other)
  Sender: FDA-Public Use
  Company Number: None

PATIENT
  Weight: 73.48 kg

DRUGS (1)
  1. CHLORHEXIDINE [Suspect]

REACTIONS (2)
  - Headache [None]
  - Activities of daily living impaired [None]
